FAERS Safety Report 4329884-2 (Version None)
Quarter: 2004Q1

REPORT INFORMATION
  Report Type: 
  Country: None (occurrence: None)
  Receive Date: 20040329
  Receipt Date: 20040315
  Transmission Date: 20041129
  Serious: Yes (Hospitalization, Other)
  Sender: FDA-Public Use
  Company Number: 2004201378ES

PATIENT
  Age: 12 Year
  Sex: Male

DRUGS (4)
  1. GENOTROPIN [Suspect]
     Indication: RENAL FAILURE CHRONIC
     Dosage: 33.6 IU, WEEKLY,
     Dates: start: 19960425
  2. URSOLITE [Concomitant]
  3. CELLCEPT [Concomitant]
  4. CYCLOSPORINE [Concomitant]

REACTIONS (3)
  - DIALYSIS [None]
  - RENAL IMPAIRMENT [None]
  - TRANSPLANT REJECTION [None]
